FAERS Safety Report 19413520 (Version 1)
Quarter: 2021Q2

REPORT INFORMATION
  Report Type: Spontaneous
  Country: US (occurrence: US)
  Receive Date: 20210615
  Receipt Date: 20210615
  Transmission Date: 20210717
  Serious: No
  Sender: FDA-Public Use
  Company Number: US-DSJP-DSU-2021-117913

PATIENT
  Sex: Female

DRUGS (1)
  1. ENHERTU [Suspect]
     Active Substance: FAM-TRASTUZUMAB DERUXTECAN-NXKI
     Indication: HER2 MUTANT NON-SMALL CELL LUNG CANCER
     Dosage: UNK
     Route: 042

REACTIONS (3)
  - Off label use [Unknown]
  - Diarrhoea [Unknown]
  - Nausea [Unknown]
